FAERS Safety Report 22174572 (Version 1)
Quarter: 2023Q2

REPORT INFORMATION
  Report Type: Spontaneous
  Country: US (occurrence: US)
  Receive Date: 20230405
  Receipt Date: 20230405
  Transmission Date: 20230722
  Serious: Yes (Other)
  Sender: FDA-Public Use
  Company Number: US-SANOFI-01555669

PATIENT
  Age: 67 Year
  Sex: Male

DRUGS (1)
  1. LANTUS SOLOSTAR [Suspect]
     Active Substance: INSULIN GLARGINE
     Indication: Diabetes mellitus
     Dosage: 40 UNITS HS AND DRUG TREATMENT DURATION:YEARS
     Route: 065

REACTIONS (5)
  - Loss of consciousness [Recovered/Resolved]
  - Knee arthroplasty [Unknown]
  - Post procedural complication [Unknown]
  - Illness [Recovered/Resolved]
  - Dizziness [Recovered/Resolved]
